FAERS Safety Report 24735390 (Version 1)
Quarter: 2024Q4

REPORT INFORMATION
  Report Type: Spontaneous
  Country: US (occurrence: US)
  Receive Date: 20241215
  Receipt Date: 20241215
  Transmission Date: 20250114
  Serious: Yes (Hospitalization)
  Sender: STRIDES
  Company Number: None

PATIENT

DRUGS (3)
  1. PREDNISOLONE [Interacting]
     Active Substance: PREDNISOLONE
     Indication: Psoriasis
     Dosage: 40 MILLIGRAM
     Route: 065
  2. TERBINAFINE [Interacting]
     Active Substance: TERBINAFINE\TERBINAFINE HYDROCHLORIDE
     Indication: Psoriasis
     Dosage: 250 MILLIGRAM, QD
     Route: 065
  3. HYDROXYCHLOROQUINE [Interacting]
     Active Substance: HYDROXYCHLOROQUINE
     Indication: Psoriasis
     Dosage: 200 MILLIGRAM
     Route: 065

REACTIONS (2)
  - Psoriasis [Recovered/Resolved]
  - Drug interaction [Recovered/Resolved]
